FAERS Safety Report 20895923 (Version 5)
Quarter: 2022Q4

REPORT INFORMATION
  Report Type: Report from Study
  Country: IT (occurrence: IT)
  Receive Date: 20220531
  Receipt Date: 20221219
  Transmission Date: 20230112
  Serious: Yes (Life-Threatening)
  Sender: FDA-Public Use
  Company Number: IT-DSRSG-DS8201AU207_39031006_000003

PATIENT
  Sex: Female
  Weight: 72 kg

DRUGS (10)
  1. FAM-TRASTUZUMAB DERUXTECAN-NXKI [Suspect]
     Active Substance: FAM-TRASTUZUMAB DERUXTECAN-NXKI
     Indication: Colorectal cancer
     Dosage: 5.4 MG/KG, ONCE EVERY 3 WK
     Route: 041
     Dates: start: 20220119, end: 20220119
  2. METFORMIN [Concomitant]
     Active Substance: METFORMIN HYDROCHLORIDE
     Indication: Diabetes mellitus
     Dosage: 850 MG, BID
     Route: 048
     Dates: start: 2005, end: 20220127
  3. METOPROLOL TARTRATE [Concomitant]
     Active Substance: METOPROLOL TARTRATE
     Indication: Hypertension
     Dosage: 1 TABLET, QD
     Route: 048
     Dates: start: 2005, end: 20220126
  4. PIPERACILLIN SODIUM\TAZOBACTAM SODIUM [Concomitant]
     Active Substance: PIPERACILLIN SODIUM\TAZOBACTAM SODIUM
     Indication: Sepsis
     Dosage: 4 G/0.5 G VIAL, QD
     Route: 042
     Dates: start: 20220128, end: 20220202
  5. ALBUMIN HUMAN [Concomitant]
     Active Substance: ALBUMIN HUMAN
     Indication: Pancytopenia
     Dosage: 20 MG APPLICATION, BID
     Route: 042
     Dates: start: 20220128, end: 20220202
  6. FRESH FROZEN PLASMA [Concomitant]
     Active Substance: HUMAN PLASMA
     Indication: Pancytopenia
     Dosage: 1000 MG PLTS TRANSFUSION, SINGLE
     Route: 042
     Dates: start: 20210129, end: 20220129
  7. FILGRASTIM [Concomitant]
     Active Substance: FILGRASTIM
     Indication: Pancytopenia
     Dosage: 30 MU VIAL, SINGLE
     Route: 030
     Dates: start: 20220128, end: 20220201
  8. FLUCONAZOLE [Concomitant]
     Active Substance: FLUCONAZOLE
     Indication: Pancytopenia
     Dosage: 400 MG VIAL, QD
     Route: 042
     Dates: start: 20220128, end: 20220202
  9. PALONOSETRON [Concomitant]
     Active Substance: PALONOSETRON
     Indication: Prophylaxis of nausea and vomiting
     Dosage: 250 UG, PRE-THERAPY INFUSION
     Route: 042
     Dates: start: 20220119, end: 20220119
  10. DEXAMETHASONE [Concomitant]
     Active Substance: DEXAMETHASONE
     Indication: Prophylaxis of nausea and vomiting
     Dosage: 8 MG VIAL, PRE-THERAPY INFUSION FOR NAUSEA
     Route: 042
     Dates: start: 20220119, end: 20220119

REACTIONS (1)
  - Sepsis [Recovering/Resolving]

NARRATIVE: CASE EVENT DATE: 20220128
